FAERS Safety Report 7819200-3 (Version None)
Quarter: 2011Q4

REPORT INFORMATION
  Report Type: 
  Country: None (occurrence: None)
  Receive Date: 20111012
  Receipt Date: 20110930
  Transmission Date: 20120403
  Serious: Yes (Hospitalization)
  Sender: FDA-Public Use
  Company Number: 2011090204

PATIENT
  Age: 18 Year
  Sex: Female

DRUGS (2)
  1. MESALAMINE [Suspect]
     Indication: COLITIS ULCERATIVE
     Dosage: 1 GM (1 GM, DAILY), RECTAL
     Route: 054
     Dates: start: 20110816, end: 20110831
  2. ASACOL [Suspect]
     Indication: COLITIS ULCERATIVE
     Dosage: (3600 MG, DAILY), ORAL
     Route: 048
     Dates: start: 20110725, end: 20110831

REACTIONS (1)
  - EOSINOPHILIC PNEUMONIA [None]
